FAERS Safety Report 7447969-9 (Version None)
Quarter: 2011Q2

REPORT INFORMATION
  Report Type: 
  Country: None (occurrence: None)
  Receive Date: 20110429
  Receipt Date: 20110425
  Transmission Date: 20111010
  Serious: Yes (Life-Threatening, Other)
  Sender: FDA-Public Use
  Company Number: US-ASTRAZENECA-2011SE23652

PATIENT
  Age: 22 Year
  Sex: Female

DRUGS (6)
  1. MYCOPHENOLATE MOFETIL [Suspect]
     Dosage: INGESTED ENTIRE CONTENT OF BOTTLE
     Route: 048
  2. FERROUS SULFATE TAB [Suspect]
  3. MYCOPHENOLATE MOFETIL [Suspect]
     Indication: IMMUNOSUPPRESSION
     Route: 048
  4. TACROLIMUS [Suspect]
  5. OMEPRAZOLE [Suspect]
     Route: 048
  6. PREDNISONE [Suspect]

REACTIONS (4)
  - OVERDOSE [None]
  - SUICIDE ATTEMPT [None]
  - DRUG EXPOSURE DURING PREGNANCY [None]
  - FOETAL DISORDER [None]
